FAERS Safety Report 8889045 (Version 1)
Quarter: 2012Q4

REPORT INFORMATION
  Report Type: Report from Study
  Country: DE (occurrence: DE)
  Receive Date: 20121106
  Receipt Date: 20121106
  Transmission Date: 20130627
  Serious: Yes (Hospitalization)
  Sender: FDA-Public Use
  Company Number: DE-TEVA-368811USA

PATIENT
  Age: 60 Year
  Sex: Male
  Weight: 81 kg

DRUGS (8)
  1. BENDAMUSTINE [Suspect]
     Indication: MANTLE CELL LYMPHOMA
     Dosage: cyclic
     Route: 042
  2. RITUXIMAB [Suspect]
     Indication: MANTLE CELL LYMPHOMA
     Dosage: cyclic
     Route: 042
     Dates: start: 20121019
  3. CITALOPRAM [Concomitant]
     Dates: start: 20110505
  4. ATACAND [Concomitant]
     Dates: start: 20100501
  5. PANTOZOL [Concomitant]
     Dates: start: 20090901
  6. CARBAMAZEPINE [Concomitant]
     Dates: start: 20110701
  7. CYMBALTA [Concomitant]
     Dates: start: 20090901
  8. LYRICA [Concomitant]
     Dates: start: 20110501

REACTIONS (15)
  - Pneumonia [Recovered/Resolved]
  - Acute sinusitis [Recovered/Resolved]
  - Dysphonia [Recovered/Resolved]
  - Chest pain [Recovered/Resolved]
  - Cough [Unknown]
  - Pharyngitis [Recovered/Resolved]
  - Headache [Recovered/Resolved]
  - Cough [Recovered/Resolved]
  - Urinary retention [Recovered/Resolved]
  - Dysuria [Recovered/Resolved]
  - Chills [Recovered/Resolved]
  - Pyrexia [Recovered/Resolved]
  - Cyanosis [Recovered/Resolved]
  - Chest discomfort [Recovered/Resolved]
  - Neutropenia [Recovered/Resolved]
